FAERS Safety Report 7544205-X (Version None)
Quarter: 2011Q2

REPORT INFORMATION
  Report Type: 
  Country: None (occurrence: None)
  Receive Date: 20110613
  Receipt Date: 20061102
  Transmission Date: 20111010
  Serious: Yes (Hospitalization, Other)
  Sender: FDA-Public Use
  Company Number: PHHO2006CL17757

PATIENT
  Sex: Male

DRUGS (3)
  1. VALSARTAN  AND HYDROCHLOROTHIAZIDE [Suspect]
     Indication: HYPERTENSION
     Dosage: 172.5 MG, UNK
  2. CARVEDILOL [Concomitant]
  3. CAPTOPRIL [Concomitant]
     Indication: HYPERTENSION

REACTIONS (3)
  - MYOCARDIAL INFARCTION [None]
  - BLOOD PRESSURE INCREASED [None]
  - ARTERIAL OCCLUSIVE DISEASE [None]
